FAERS Safety Report 10153330 (Version 1)
Quarter: 2014Q2

REPORT INFORMATION
  Report Type: Spontaneous
  Country: US (occurrence: US)
  Receive Date: 20140505
  Receipt Date: 20140505
  Transmission Date: 20141212
  Serious: Yes (Other)
  Sender: FDA-Public Use
  Company Number: US-CELGENEUS-163-21660-14045622

PATIENT
  Age: 69 Year
  Sex: Female

DRUGS (2)
  1. ABRAXANE [Suspect]
     Indication: BREAST CANCER STAGE IV
     Route: 065
     Dates: start: 200910, end: 201007
  2. XELODA [Suspect]
     Indication: BREAST CANCER STAGE IV

REACTIONS (3)
  - Anaphylactic shock [Unknown]
  - Palmar-plantar erythrodysaesthesia syndrome [Unknown]
  - Breast cancer recurrent [Unknown]
